FAERS Safety Report 9955615 (Version 2)
Quarter: 2014Q1

REPORT INFORMATION
  Report Type: Spontaneous
  Country: PR (occurrence: PR)
  Receive Date: 20140304
  Receipt Date: 20140304
  Transmission Date: 20141002
  Serious: No
  Sender: FDA-Public Use
  Company Number: PR-ABBVIE-13P-131-1054422-00

PATIENT
  Sex: Female
  Weight: 74 kg

DRUGS (8)
  1. HUMIRA [Suspect]
     Indication: RHEUMATOID ARTHRITIS
     Route: 058
     Dates: start: 201110
  2. SYNTHROID [Concomitant]
     Indication: THYROID NEOPLASM
     Route: 048
     Dates: start: 2009
  3. ZANTAC [Concomitant]
     Indication: GASTRITIS
     Route: 048
  4. LEXAPRO [Concomitant]
     Indication: MAJOR DEPRESSION
     Route: 048
  5. KLONOPIN [Concomitant]
     Indication: MAJOR DEPRESSION
     Route: 048
  6. ALPRAZOLAM [Concomitant]
     Indication: MAJOR DEPRESSION
     Route: 048
  7. HEMATRON XT [Concomitant]
     Indication: ANAEMIA
     Route: 048
  8. ADVAIR [Concomitant]
     Indication: ASTHMA
     Route: 048

REACTIONS (3)
  - Malaise [Unknown]
  - Hepatic enzyme increased [Recovered/Resolved]
  - Dizziness [Recovered/Resolved]
